FAERS Safety Report 9895708 (Version 1)
Quarter: 2014Q1

REPORT INFORMATION
  Report Type: Spontaneous
  Country: US (occurrence: US)
  Receive Date: 20140213
  Receipt Date: 20140213
  Transmission Date: 20141002
  Serious: No
  Sender: FDA-Public Use
  Company Number: US-BRISTOL-MYERS SQUIBB COMPANY-18971200

PATIENT
  Age: 73 Year
  Sex: Male

DRUGS (12)
  1. ABATACEPT SUBQ INJECTION 125MG/ML [Suspect]
     Dosage: 1 DF=125 MG/1 ML PRE-FILLED SYRINGE (4 PACK)
     Route: 058
  2. METHOTREXATE TABS [Concomitant]
  3. DIAZEPAM [Concomitant]
     Dosage: TAB
  4. ASPIRIN [Concomitant]
     Dosage: ENTERIC COATED TABS
  5. COUMADIN TABS 1 MG [Concomitant]
  6. ADVICOR TABS [Concomitant]
     Dosage: 1 DF=750-20MG
  7. LISINOPRIL [Concomitant]
  8. FISH OIL [Concomitant]
     Dosage: CAPS
  9. NIASPAN [Concomitant]
     Dosage: 1 DF= 1000 EXTENDED RELEASE TAB
  10. METOPROLOL [Concomitant]
     Dosage: EXTENDED RELEASE TABS
  11. DILTIAZEM CD [Concomitant]
     Dosage: CAPS
  12. PREVACID [Concomitant]

REACTIONS (7)
  - Decreased appetite [Unknown]
  - Anxiety [Unknown]
  - Weight decreased [Unknown]
  - Dry mouth [Unknown]
  - Platelet count decreased [Unknown]
  - Anaemia [Unknown]
  - Fall [Unknown]
